FAERS Safety Report 6010686-6 (Version None)
Quarter: 2008Q4

REPORT INFORMATION
  Report Type: 
  Country: None (occurrence: None)
  Receive Date: 20081216
  Receipt Date: 20081201
  Transmission Date: 20090506
  Serious: Yes (Disabling, Other)
  Sender: FDA-Public Use
  Company Number: 2008S1021337

PATIENT
  Age: 51 Year
  Sex: Female

DRUGS (11)
  1. MIRTAZAPINE (MIRTAZAPINE) (15 MG) [Suspect]
     Indication: DEPRESSION
     Dosage: 15 MG; ; ORAL
     Route: 048
     Dates: start: 20080923, end: 20081009
  2. ARTHROTEC [Concomitant]
  3. CALCHEW [Concomitant]
  4. NULYTELY [Concomitant]
  5. NICORETTE /01033301/ [Concomitant]
  6. PARACETAMOL [Concomitant]
  7. SERTRALINE [Concomitant]
  8. SOLIFENACIN [Concomitant]
  9. ZOPLICONE [Concomitant]
  10. AMANTADINE HCL [Concomitant]
  11. AMOXICILLIN [Concomitant]

REACTIONS (7)
  - ABDOMINAL DISTENSION [None]
  - GINGIVAL PAIN [None]
  - GLOSSODYNIA [None]
  - HYPERSENSITIVITY [None]
  - INFLUENZA LIKE ILLNESS [None]
  - OEDEMA PERIPHERAL [None]
  - TEMPERATURE INTOLERANCE [None]
